FAERS Safety Report 21870156 (Version 2)
Quarter: 2023Q2

REPORT INFORMATION
  Report Type: Spontaneous
  Country: US (occurrence: US)
  Receive Date: 20230117
  Receipt Date: 20230419
  Transmission Date: 20230721
  Serious: No
  Sender: FDA-Public Use
  Company Number: US-SA-SAC20230116000065

PATIENT
  Sex: Male

DRUGS (1)
  1. DUPIXENT [Suspect]
     Active Substance: DUPILUMAB
     Dosage: 300 MG OTHER
     Route: 058

REACTIONS (5)
  - Bronchitis [Recovering/Resolving]
  - Visual impairment [Unknown]
  - Rash pruritic [Unknown]
  - Nasopharyngitis [Unknown]
  - Condition aggravated [Unknown]
